FAERS Safety Report 4353921-2 (Version None)
Quarter: 2004Q2

REPORT INFORMATION
  Report Type: 
  Country: None (occurrence: None)
  Receive Date: 20040503
  Receipt Date: 20040421
  Transmission Date: 20050107
  Serious: Yes (Death, Life-Threatening)
  Sender: FDA-Public Use
  Company Number: CO-JNJFOC-20040404642

PATIENT
  Age: 54 Year
  Sex: Female
  Weight: 40 kg

DRUGS (6)
  1. REMICADE [Suspect]
     Indication: RHEUMATOID ARTHRITIS
     Dosage: 200 MG, INTRAVENOUS
     Route: 042
     Dates: start: 20031210
  2. REMICADE [Suspect]
     Indication: RHEUMATOID ARTHRITIS
     Dosage: 200 MG, INTRAVENOUS
     Route: 042
     Dates: start: 20040204
  3. METHOTREXATE [Concomitant]
  4. CLOROQUIN (ALL OTHER THERAPEUTIC PRODUCTS) [Concomitant]
  5. PREDNISOLONE [Concomitant]
  6. LEFLUNOMIDE (LEFLUNOMIDE) [Concomitant]

REACTIONS (8)
  - ACUTE PULMONARY HISTOPLASMOSIS [None]
  - ASPIRATION [None]
  - ASTHENIA [None]
  - DIARRHOEA [None]
  - GASTROINTESTINAL DISORDER [None]
  - HAEMOGLOBIN DECREASED [None]
  - METASTASES TO LUNG [None]
  - WEIGHT DECREASED [None]
